FAERS Safety Report 20725437 (Version 3)
Quarter: 2022Q3

REPORT INFORMATION
  Report Type: Spontaneous
  Country: CN (occurrence: CN)
  Receive Date: 20220419
  Receipt Date: 20220727
  Transmission Date: 20221026
  Serious: Yes (Other)
  Sender: FDA-Public Use
  Company Number: CN-GE HEALTHCARE-2022CSU002581

PATIENT
  Age: 62 Year
  Sex: Female

DRUGS (2)
  1. OMNIPAQUE [Suspect]
     Active Substance: IOHEXOL
     Indication: Angiogram
     Dosage: 100 ML, SINGLE
     Route: 041
     Dates: start: 20220410, end: 20220410
  2. OMNIPAQUE [Suspect]
     Active Substance: IOHEXOL
     Indication: Hyperlipidaemia

REACTIONS (4)
  - Skin tightness [Recovering/Resolving]
  - Swelling face [Recovering/Resolving]
  - Rash [Recovering/Resolving]
  - Pruritus [Recovering/Resolving]

NARRATIVE: CASE EVENT DATE: 20220410
